FAERS Safety Report 9098490 (Version 2)
Quarter: 2013Q1

REPORT INFORMATION
  Report Type: Spontaneous
  Country: BR (occurrence: BR)
  Receive Date: 20130213
  Receipt Date: 20130315
  Transmission Date: 20140127
  Serious: Yes (Other)
  Sender: FDA-Public Use
  Company Number: PHHY2013BR013071

PATIENT
  Sex: Female

DRUGS (5)
  1. DIOVAN HCT [Suspect]
     Indication: BLOOD PRESSURE ABNORMAL
     Dosage: 1 DF (VALS 320 MG, HYDR 12.5 MG), DAILY
     Route: 048
  2. DIOVAN [Suspect]
     Indication: BLOOD PRESSURE ABNORMAL
     Dosage: 80 MG, UNK
  3. NEBILET [Concomitant]
     Indication: HYPERTENSION
     Dosage: 1 DF, (5 MG) DAILY
     Route: 048
  4. VITALUX PLUS [Concomitant]
     Indication: EYE OPERATION COMPLICATION
     Dosage: 1 DF, DAILY
     Route: 048
  5. OMEPRAZOL [Concomitant]
     Indication: GASTRIC DISORDER
     Dosage: 2 DF, DAILY
     Route: 048

REACTIONS (2)
  - Motor dysfunction [Not Recovered/Not Resolved]
  - Blindness unilateral [Not Recovered/Not Resolved]
